FAERS Safety Report 15637997 (Version 1)
Quarter: 2018Q4

REPORT INFORMATION
  Report Type: Spontaneous
  Country: US (occurrence: US)
  Receive Date: 20181120
  Receipt Date: 20181120
  Transmission Date: 20190205
  Serious: No
  Sender: FDA-Public Use
  Company Number: US-JNJFOC-20180717728

PATIENT
  Age: 73 Year
  Sex: Female

DRUGS (17)
  1. IMBRUVICA [Suspect]
     Active Substance: IBRUTINIB
     Indication: CHRONIC LYMPHOCYTIC LEUKAEMIA
     Route: 048
     Dates: start: 20160331
  2. COENZYME Q10 [Concomitant]
     Active Substance: UBIDECARENONE
  3. LUTEIN [Concomitant]
     Active Substance: LUTEIN
  4. NAPROXEN. [Concomitant]
     Active Substance: NAPROXEN
  5. MAGNESIUM [Concomitant]
     Active Substance: MAGNESIUM
  6. DEXILANT [Concomitant]
     Active Substance: DEXLANSOPRAZOLE
  7. CARBOPLATIN. [Concomitant]
     Active Substance: CARBOPLATIN
  8. VENTOLIN [Concomitant]
     Active Substance: ALBUTEROL SULFATE
  9. IMBRUVICA [Suspect]
     Active Substance: IBRUTINIB
     Indication: OVARIAN CANCER
     Route: 048
     Dates: start: 20160331
  10. ZEJULA [Suspect]
     Active Substance: NIRAPARIB
     Indication: OVARIAN CANCER
     Route: 048
  11. VITAMIN D [Concomitant]
     Active Substance: CHOLECALCIFEROL
  12. SYMBICORT [Concomitant]
     Active Substance: BUDESONIDE\FORMOTEROL FUMARATE DIHYDRATE
  13. TAXOL [Concomitant]
     Active Substance: PACLITAXEL
  14. ZEJULA [Suspect]
     Active Substance: NIRAPARIB
     Indication: CHRONIC LYMPHOCYTIC LEUKAEMIA
     Route: 048
  15. MULTIVITAMINS [Concomitant]
     Active Substance: VITAMINS
  16. ZEJULA [Suspect]
     Active Substance: NIRAPARIB
     Indication: OVARIAN CANCER
     Route: 048
     Dates: start: 20170731
  17. ZEJULA [Suspect]
     Active Substance: NIRAPARIB
     Indication: CHRONIC LYMPHOCYTIC LEUKAEMIA
     Route: 048
     Dates: start: 20170731

REACTIONS (3)
  - Off label use [Unknown]
  - Vomiting [Recovered/Resolved]
  - Product use in unapproved indication [Unknown]

NARRATIVE: CASE EVENT DATE: 20160331
